FAERS Safety Report 17464531 (Version 1)
Quarter: 2020Q1

REPORT INFORMATION
  Report Type: Spontaneous
  Country: HR (occurrence: HR)
  Receive Date: 20200226
  Receipt Date: 20200226
  Transmission Date: 20200409
  Serious: Yes (Hospitalization, Other)
  Sender: FDA-Public Use
  Company Number: HR-PFIZER INC-2020081661

PATIENT
  Age: 77 Year
  Sex: Male

DRUGS (6)
  1. ATORVASTATIN CALCIUM. [Suspect]
     Active Substance: ATORVASTATIN CALCIUM
     Dosage: 20 MG, 1X/DAY IN THE EVENING
  2. RAMIPRIL. [Suspect]
     Active Substance: RAMIPRIL
     Dosage: 5 MG, 1X/DAY IN THE EVENING
  3. AMLODIPINE BESILATE [Suspect]
     Active Substance: AMLODIPINE BESYLATE
     Dosage: 5 MG, 1X/DAY IN THE MORNING
  4. MARTEFARIN [Suspect]
     Active Substance: WARFARIN
     Dosage: DOSE ACCORDING TO INR
  5. CARVEDILOL. [Suspect]
     Active Substance: CARVEDILOL
     Dosage: 6.25 MG, 2X/DAY
  6. METFORMIN [Suspect]
     Active Substance: METFORMIN HYDROCHLORIDE
     Dosage: 500 MG, 2X/DAY

REACTIONS (7)
  - Hemiparesis [Recovered/Resolved]
  - Speech disorder [Recovered/Resolved]
  - Overdose [Unknown]
  - Blood loss anaemia [Unknown]
  - International normalised ratio increased [Unknown]
  - Transient ischaemic attack [Recovered/Resolved]
  - Haematochezia [Unknown]
